FAERS Safety Report 6212128-4 (Version None)
Quarter: 2009Q2

REPORT INFORMATION
  Report Type: 
  Country: None (occurrence: None)
  Receive Date: 20090602
  Receipt Date: 20090525
  Transmission Date: 20091009
  Serious: Yes (Hospitalization)
  Sender: FDA-Public Use
  Company Number: PHHY2009HK20392

PATIENT
  Age: 35 Year
  Sex: Female

DRUGS (2)
  1. CYCLOSPORINE [Suspect]
     Indication: SYSTEMIC LUPUS ERYTHEMATOSUS
     Dosage: UNK
     Dates: start: 20061101
  2. STEROIDS NOS [Concomitant]
     Indication: POLYMYOSITIS

REACTIONS (7)
  - BLINDNESS TRANSIENT [None]
  - GRAND MAL CONVULSION [None]
  - HYPERTENSION [None]
  - IMMUNOSUPPRESSANT DRUG LEVEL INCREASED [None]
  - MUSCULAR WEAKNESS [None]
  - POLYMYOSITIS [None]
  - REVERSIBLE POSTERIOR LEUKOENCEPHALOPATHY SYNDROME [None]
